FAERS Safety Report 15580479 (Version 3)
Quarter: 2018Q4

REPORT INFORMATION
  Report Type: Report from Study
  Country: US (occurrence: US)
  Receive Date: 20181102
  Receipt Date: 20181221
  Transmission Date: 20190205
  Serious: Yes (Hospitalization)
  Sender: FDA-Public Use
  Company Number: US-ACTELION-A-NJ2018-166181

PATIENT
  Age: 37 Year
  Sex: Female
  Weight: 50.79 kg

DRUGS (6)
  1. LETAIRIS [Concomitant]
     Active Substance: AMBRISENTAN
  2. VELETRI [Suspect]
     Active Substance: EPOPROSTENOL
     Dosage: 13.8 NG/KG, PER MIN
     Route: 042
  3. VELETRI [Suspect]
     Active Substance: EPOPROSTENOL
     Dosage: 8.2 NG/KG, PER MIN
     Route: 042
  4. VANCOMYCIN [Suspect]
     Active Substance: VANCOMYCIN
     Indication: PRODUCT USED FOR UNKNOWN INDICATION
     Route: 065
  5. ADCIRCA [Concomitant]
     Active Substance: TADALAFIL
  6. VELETRI [Suspect]
     Active Substance: EPOPROSTENOL
     Indication: PULMONARY ARTERIAL HYPERTENSION
     Dosage: 15.2 NG/KG, PER MIN
     Route: 042

REACTIONS (17)
  - Device breakage [Unknown]
  - Catheter site discharge [Unknown]
  - Catheter site vesicles [Unknown]
  - Device leakage [Unknown]
  - Dyspnoea [Recovered/Resolved]
  - Device connection issue [Unknown]
  - Catheter site dryness [Unknown]
  - Catheter site pruritus [Unknown]
  - Vascular device infection [Unknown]
  - Nausea [Unknown]
  - Catheter site pain [Recovering/Resolving]
  - Asthenia [Recovering/Resolving]
  - Device malfunction [Unknown]
  - Headache [Recovered/Resolved]
  - Catheter site erythema [Unknown]
  - Catheter management [Unknown]
  - Hypersensitivity [Unknown]
